FAERS Safety Report 16323363 (Version 2)
Quarter: 2019Q2

REPORT INFORMATION
  Report Type: Spontaneous
  Country: AU (occurrence: AU)
  Receive Date: 20190517
  Receipt Date: 20190619
  Transmission Date: 20190711
  Serious: Yes (Other)
  Sender: FDA-Public Use
  Company Number: AU-AMGEN-AUSSP2019075244

PATIENT
  Sex: Female

DRUGS (1)
  1. PROLIA [Suspect]
     Active Substance: DENOSUMAB
     Indication: OSTEOPOROSIS PROPHYLAXIS
     Dosage: UNK
     Route: 065
     Dates: start: 201604

REACTIONS (5)
  - Ovarian adenoma [Unknown]
  - Breast cancer [Unknown]
  - Weight increased [Unknown]
  - Uterine leiomyoma [Unknown]
  - Fracture [Unknown]

NARRATIVE: CASE EVENT DATE: 2016
